FAERS Safety Report 14611338 (Version 4)
Quarter: 2019Q1

REPORT INFORMATION
  Report Type: Spontaneous
  Country: US (occurrence: US)
  Receive Date: 20180308
  Receipt Date: 20190319
  Transmission Date: 20190417
  Serious: Yes (Hospitalization, Other)
  Sender: FDA-Public Use
  Company Number: US-ASTRAZENECA-2018SE27617

PATIENT
  Age: 22492 Day
  Sex: Female
  Weight: 58 kg

DRUGS (42)
  1. PRAVASTATIN. [Concomitant]
     Active Substance: PRAVASTATIN
     Indication: BLOOD CHOLESTEROL INCREASED
     Route: 065
     Dates: start: 2011
  2. CALCIUM [Concomitant]
     Active Substance: CALCIUM
     Route: 048
  3. VIGAMOX [Concomitant]
     Active Substance: MOXIFLOXACIN HYDROCHLORIDE
     Indication: ANTIBIOTIC THERAPY
     Route: 065
     Dates: start: 2012
  4. TRADJENTA [Concomitant]
     Active Substance: LINAGLIPTIN
     Route: 048
  5. COLCHICINE. [Concomitant]
     Active Substance: COLCHICINE
     Route: 048
  6. HYDROCODONE BITARTRATE AND ACETAMINOPHEN [Concomitant]
     Active Substance: ACETAMINOPHEN\HYDROCODONE BITARTRATE
  7. TAGAMET HB [Concomitant]
     Active Substance: CIMETIDINE
     Route: 065
     Dates: start: 2011
  8. ZANTAC150/75 [Concomitant]
     Route: 065
     Dates: start: 2011
  9. ESTRADIOL. [Concomitant]
     Active Substance: ESTRADIOL
     Route: 048
  10. TOPROL XL [Concomitant]
     Active Substance: METOPROLOL SUCCINATE
     Route: 048
     Dates: end: 20161114
  11. VITAMIN D3 [Concomitant]
     Active Substance: CHOLECALCIFEROL
     Route: 048
  12. LAMICTAL [Concomitant]
     Active Substance: LAMOTRIGINE
     Route: 048
  13. FOLIC ACID. [Concomitant]
     Active Substance: FOLIC ACID
  14. NEXIUM [Suspect]
     Active Substance: ESOMEPRAZOLE MAGNESIUM
     Indication: GASTROOESOPHAGEAL REFLUX DISEASE
     Route: 048
     Dates: start: 2005
  15. CLOPIDOGREL [Concomitant]
     Active Substance: CLOPIDOGREL BISULFATE
     Indication: ANTICOAGULANT THERAPY
     Route: 048
     Dates: start: 2014
  16. ADVIL [Concomitant]
     Active Substance: IBUPROFEN
     Indication: HEADACHE
     Dosage: VARIOUS TIMES - 2016
     Route: 065
  17. ASPIRIN. [Concomitant]
     Active Substance: ASPIRIN
     Route: 048
  18. ALBUTEROL. [Concomitant]
     Active Substance: ALBUTEROL
  19. METFORMIN [Concomitant]
     Active Substance: METFORMIN HYDROCHLORIDE
     Route: 048
  20. AMLODIPINE [Concomitant]
     Active Substance: AMLODIPINE BESYLATE
     Route: 048
  21. ATORVASTATIN [Concomitant]
     Active Substance: ATORVASTATIN
     Route: 048
  22. CALCITRIOL. [Concomitant]
     Active Substance: CALCITRIOL
  23. SIMVASTATIN. [Concomitant]
     Active Substance: SIMVASTATIN
  24. ENOXAPARIN [Concomitant]
     Active Substance: ENOXAPARIN
  25. COZAAR [Concomitant]
     Active Substance: LOSARTAN POTASSIUM
     Indication: HYPERTENSION
     Route: 065
     Dates: start: 2010
  26. TYLENOL PM [Concomitant]
     Active Substance: ACETAMINOPHEN\DIPHENHYDRAMINE
     Indication: INSOMNIA
     Dosage: VARIOUS TIMES - PRESENT
     Route: 065
  27. FOLIC ACID. [Concomitant]
     Active Substance: FOLIC ACID
     Route: 048
  28. FERGON [Concomitant]
     Active Substance: FERROUS GLUCONATE
     Route: 048
  29. BENZTROPINE. [Concomitant]
     Active Substance: BENZTROPINE
     Route: 048
  30. NEXIUM [Suspect]
     Active Substance: ESOMEPRAZOLE MAGNESIUM
     Indication: GASTROOESOPHAGEAL REFLUX DISEASE
     Dosage: GENERIC
     Route: 048
  31. ALTACE [Concomitant]
     Active Substance: RAMIPRIL
     Indication: HYPERTENSION
     Route: 065
     Dates: start: 2009
  32. FUROSEMIDE. [Concomitant]
     Active Substance: FUROSEMIDE
     Indication: HYPERTENSION
     Route: 048
     Dates: start: 2016
  33. HYDRALAZINE [Concomitant]
     Active Substance: HYDRALAZINE HYDROCHLORIDE
     Indication: HYPERTENSION
     Route: 065
     Dates: start: 2016
  34. LISINOPRIL. [Concomitant]
     Active Substance: LISINOPRIL
     Indication: HYPERTENSION
     Route: 065
     Dates: start: 2016
  35. PEPCID AC [Concomitant]
     Active Substance: FAMOTIDINE
     Route: 065
     Dates: start: 2010
  36. METOPROLOL. [Concomitant]
     Active Substance: METOPROLOL
     Route: 065
  37. LOSARTAN/HCT [Concomitant]
     Active Substance: HYDROCHLOROTHIAZIDE\LOSARTAN POTASSIUM
     Dosage: 100-12.5 MG
     Route: 065
  38. VITAMINS NOS [Concomitant]
     Active Substance: VITAMINS
     Indication: SUPPLEMENTATION THERAPY
     Route: 065
     Dates: start: 1989, end: 2016
  39. ZOLPIDEM [Concomitant]
     Active Substance: ZOLPIDEM\ZOLPIDEM TARTRATE
     Route: 065
  40. FLUCONAZOLE. [Concomitant]
     Active Substance: FLUCONAZOLE
     Route: 065
  41. BUTALBITAL [Concomitant]
     Active Substance: BUTALBITAL
     Dosage: 50-32.5-40MG TABLET. 1-2 O.AL AS NEEDED
     Route: 048
  42. NEXIUM [Suspect]
     Active Substance: ESOMEPRAZOLE MAGNESIUM
     Indication: GASTROOESOPHAGEAL REFLUX DISEASE
     Route: 048
     Dates: start: 200901, end: 201407

REACTIONS (5)
  - End stage renal disease [Unknown]
  - Acute kidney injury [Not Recovered/Not Resolved]
  - Chronic kidney disease [Not Recovered/Not Resolved]
  - Renal failure [Unknown]
  - Nephrogenic anaemia [Unknown]

NARRATIVE: CASE EVENT DATE: 20101001
